FAERS Safety Report 15210247 (Version 1)
Quarter: 2018Q3

REPORT INFORMATION
  Report Type: Spontaneous
  Country: US (occurrence: US)
  Receive Date: 20180629
  Receipt Date: 20180629
  Transmission Date: 20181010
  Serious: Yes (Life-Threatening, Hospitalization)
  Sender: FDA-Public Use
  Company Number: None

PATIENT
  Age: 63 Year
  Sex: Female
  Weight: 127.01 kg

DRUGS (1)
  1. METFORMIN [Suspect]
     Active Substance: METFORMIN HYDROCHLORIDE
     Indication: DIABETES MELLITUS
     Dosage: ?          QUANTITY:1 PILL X^S 2/DAY;?
     Route: 048
     Dates: end: 20180514

REACTIONS (16)
  - Skin lesion [None]
  - Confusional state [None]
  - Fungal infection [None]
  - Lethargy [None]
  - Product substitution issue [None]
  - Diabetes mellitus inadequate control [None]
  - Vision blurred [None]
  - Loss of personal independence in daily activities [None]
  - Device battery issue [None]
  - Dry skin [None]
  - Heart rate increased [None]
  - Memory impairment [None]
  - Pruritus [None]
  - Blood glucose increased [None]
  - Drug effect decreased [None]
  - Blood glucose fluctuation [None]
